FAERS Safety Report 6971893-9 (Version None)
Quarter: 2010Q3

REPORT INFORMATION
  Report Type: 
  Country: None (occurrence: None)
  Receive Date: 20100908
  Receipt Date: 20100908
  Transmission Date: 20110219
  Serious: Yes (Hospitalization)
  Sender: FDA-Public Use
  Company Number: None

PATIENT
  Sex: Male
  Weight: 33 kg

DRUGS (3)
  1. METHOTREXATE [Suspect]
     Dosage: 60 MG
  2. VINCRISTINE SULFATE [Suspect]
     Dosage: 1.7 MG
  3. DEXAMETHASONE [Suspect]
     Dosage: 32.5 MG

REACTIONS (3)
  - ENTEROBACTER TEST POSITIVE [None]
  - NEUTROPENIA [None]
  - SEPTIC SHOCK [None]
